FAERS Safety Report 25765147 (Version 1)
Quarter: 2025Q3

REPORT INFORMATION
  Report Type: Spontaneous
  Country: US (occurrence: US)
  Receive Date: 20250905
  Receipt Date: 20250905
  Transmission Date: 20251020
  Serious: No
  Sender: CSL BEHRING
  Company Number: US-BEH-2025216859

PATIENT
  Age: 47 Year
  Sex: Male

DRUGS (8)
  1. VELPHORO [Suspect]
     Active Substance: SUCROFERRIC OXYHYDROXIDE
     Indication: Product used for unknown indication
     Route: 048
     Dates: start: 20250811
  2. CALCIFEDIOL [Concomitant]
     Active Substance: CALCIFEDIOL
  3. MIDODRINE [Concomitant]
     Active Substance: MIDODRINE
  4. NEPHRO VITE RX [Concomitant]
     Active Substance: ASCORBIC ACID\BIOTIN\CALCIUM PANTOTHENATE\CYANOCOBALAMIN\FOLIC ACID\NIACINAMIDE\PYRIDOXINE HYDROCHLO
  5. SEROQUEL [Concomitant]
     Active Substance: QUETIAPINE FUMARATE
  6. TACROLIMUS [Concomitant]
     Active Substance: TACROLIMUS
     Dosage: 1, BID
  7. TRAZODONE [Concomitant]
     Active Substance: TRAZODONE HYDROCHLORIDE
  8. SEVELAMER [Suspect]
     Active Substance: SEVELAMER

REACTIONS (3)
  - Pain [Unknown]
  - Weight increased [Unknown]
  - Urine output increased [Unknown]

NARRATIVE: CASE EVENT DATE: 20250815
